FAERS Safety Report 25478556 (Version 1)
Quarter: 2025Q2

REPORT INFORMATION
  Report Type: Spontaneous
  Country: US (occurrence: None)
  Receive Date: 20250625
  Receipt Date: 20250625
  Transmission Date: 20250717
  Serious: Yes (Other)
  Sender: FDA-CTU
  Company Number: None

PATIENT
  Age: 27 Year
  Sex: Female
  Weight: 68.04 kg

DRUGS (5)
  1. ZYRTEC [Suspect]
     Active Substance: CETIRIZINE HYDROCHLORIDE
     Indication: Seasonal allergy
     Dosage: OTHER QUANTITY : 1 TABLET;?FREQUENCY : DAILY;?
     Route: 048
     Dates: start: 20110801, end: 20200601
  2. COVID-19 VACCINE NOS [Suspect]
     Active Substance: COVID-19 VACCINE
  3. GARDASIL [Suspect]
     Active Substance: HUMAN PAPILLOMAVIRUS QUADRIVALENT (TYPES 6, 11, 16, AND 18) VACCINE, RECOMBINANT
  4. PEPCID [Concomitant]
     Active Substance: FAMOTIDINE
  5. VITAMINS [Concomitant]
     Active Substance: VITAMINS

REACTIONS (9)
  - Withdrawal syndrome [None]
  - Pruritus [None]
  - Urticaria [None]
  - Angioedema [None]
  - Loss of personal independence in daily activities [None]
  - Corneal cyst [None]
  - Drug exposure before pregnancy [None]
  - Therapy interrupted [None]
  - Symptom recurrence [None]

NARRATIVE: CASE EVENT DATE: 20200601
